FAERS Safety Report 4678020-1 (Version None)
Quarter: 2005Q2

REPORT INFORMATION
  Report Type: 
  Country: None (occurrence: None)
  Receive Date: 20050531
  Receipt Date: 20050515
  Transmission Date: 20051028
  Serious: Yes (Hospitalization)
  Sender: FDA-Public Use
  Company Number: US-MERCK-0505USA01991

PATIENT
  Age: 70 Year
  Sex: Male
  Weight: 78 kg

DRUGS (4)
  1. ZOCOR [Suspect]
     Indication: HYPERCHOLESTEROLAEMIA
     Route: 048
  2. CELEBREX [Concomitant]
     Route: 065
  3. COUMADIN [Concomitant]
     Route: 065
  4. CAPTOPRIL [Concomitant]
     Route: 065

REACTIONS (1)
  - GASTROENTERITIS VIRAL [None]
